FAERS Safety Report 24702604 (Version 2)
Quarter: 2024Q4

REPORT INFORMATION
  Report Type: Spontaneous
  Country: JP (occurrence: JP)
  Receive Date: 20241205
  Receipt Date: 20241229
  Transmission Date: 20250115
  Serious: Yes (Death, Hospitalization, Other)
  Sender: GALDERMA
  Company Number: JP-GALDERMA-JP2024005453

PATIENT

DRUGS (12)
  1. NEMOLIZUMAB [Suspect]
     Active Substance: NEMOLIZUMAB
     Indication: Dermatitis atopic
     Dosage: 60 MILLIGRAM/ 4 WEEKS
     Route: 058
     Dates: start: 20231107, end: 20231107
  2. NEMOLIZUMAB [Suspect]
     Active Substance: NEMOLIZUMAB
     Dosage: 60 MILLIGRAM/ 4 WEEKS
     Route: 058
     Dates: start: 20240111, end: 20240111
  3. NEMOLIZUMAB [Suspect]
     Active Substance: NEMOLIZUMAB
     Dosage: 60 MILLIGRAM/ 4 WEEKS
     Route: 058
     Dates: start: 20240214, end: 20240214
  4. NEMOLIZUMAB [Suspect]
     Active Substance: NEMOLIZUMAB
     Dosage: 60 MILLIGRAM/4 WEEKS
     Route: 058
     Dates: start: 20240315, end: 20240315
  5. LASIX [Concomitant]
     Active Substance: FUROSEMIDE
     Indication: Hypertension
     Dosage: 40 MILLIGRAM
     Route: 048
     Dates: start: 20231107
  6. VOALLA [Concomitant]
     Indication: Dermatitis atopic
     Dosage: 1.2 MILLIGRAM
     Route: 061
     Dates: start: 20221111
  7. TRAMCET [Concomitant]
     Active Substance: ACETAMINOPHEN\TRAMADOL
     Indication: Lumbar spinal stenosis
     Dosage: 4 DOSAGE FORM
     Route: 048
     Dates: start: 20230421
  8. LYRICA [Concomitant]
     Active Substance: PREGABALIN
     Indication: Lumbar spinal stenosis
     Dosage: 150 MILLIGRAM
     Route: 048
     Dates: start: 20230629
  9. LOXOPROFEN SODIUM DIHYDRATE [Concomitant]
     Active Substance: LOXOPROFEN SODIUM DIHYDRATE
     Indication: Osteoarthritis
     Dosage: 1 DOSAGE FORM
     Route: 061
     Dates: start: 20230414
  10. CLOBETASOL PROPIONATE [Concomitant]
     Active Substance: CLOBETASOL PROPIONATE
     Indication: Dermatitis atopic
     Dosage: 7 MILLILITER
     Route: 061
     Dates: start: 20230127
  11. ARTZ DISPO [Concomitant]
     Indication: Osteoarthritis
     Dosage: 2 DOSAGE FORM
     Route: 014
     Dates: start: 20230414
  12. CALCIUM BROMIDE\DIBUCAINE HYDROCHLORIDE\SODIUM SALICYLATE [Concomitant]
     Active Substance: CALCIUM BROMIDE\DIBUCAINE HYDROCHLORIDE\SODIUM SALICYLATE
     Indication: Lumbar spinal stenosis
     Dosage: 1 DOSAGE FORM
     Route: 061
     Dates: start: 20230622

REACTIONS (4)
  - Pneumonia [Fatal]
  - Eyelid oedema [Recovering/Resolving]
  - Erythema [Unknown]
  - Oedema peripheral [Unknown]

NARRATIVE: CASE EVENT DATE: 20231114
